FAERS Safety Report 22961007 (Version 2)
Quarter: 2023Q4

REPORT INFORMATION
  Report Type: Spontaneous
  Country: US (occurrence: None)
  Receive Date: 20230920
  Receipt Date: 20231115
  Transmission Date: 20240109
  Serious: No
  Sender: FDA-Public Use
  Company Number: 2023A210412

PATIENT
  Age: 64 Year
  Sex: Female

DRUGS (2)
  1. BUDESONIDE\FORMOTEROL [Suspect]
     Active Substance: BUDESONIDE\FORMOTEROL
     Indication: Hypoxia
     Dosage: DOSE UNKNOWN, TWO TIMES A DAY
     Route: 055
  2. SYMBICORT [Suspect]
     Active Substance: BUDESONIDE\FORMOTEROL FUMARATE DIHYDRATE
     Indication: Hypoxia
     Dosage: DOSE UNKNOWN, TWO TIMES A DAY
     Route: 055

REACTIONS (9)
  - Dyspnoea [Unknown]
  - Illness [Unknown]
  - Hypertension [Unknown]
  - Asthma [Unknown]
  - Type 2 diabetes mellitus [Unknown]
  - Wrong technique in device usage process [Unknown]
  - Product substitution issue [Unknown]
  - Device malfunction [Unknown]
  - Product packaging quantity issue [Unknown]

NARRATIVE: CASE EVENT DATE: 20230101
